FAERS Safety Report 9643607 (Version 1)
Quarter: 2013Q4

REPORT INFORMATION
  Report Type: Spontaneous
  Country: US (occurrence: US)
  Receive Date: 20131024
  Receipt Date: 20131024
  Transmission Date: 20140711
  Serious: Yes (Other)
  Sender: FDA-Public Use
  Company Number: US-PFIZER INC-2013303832

PATIENT
  Age: 5 Year
  Sex: Female

DRUGS (1)
  1. DRISTAN 12-HOUR [Suspect]
     Indication: NASAL CONGESTION
     Dosage: UNK
     Route: 045

REACTIONS (2)
  - Drug administered to patient of inappropriate age [Unknown]
  - Angina pectoris [Unknown]
